FAERS Safety Report 8551897-5 (Version None)
Quarter: 2012Q3

REPORT INFORMATION
  Report Type: 
  Country: None (occurrence: None)
  Receive Date: 20120730
  Receipt Date: 20120720
  Transmission Date: 20120928
  Serious: Yes (Other)
  Sender: FDA-Public Use
  Company Number: JP-VERTEX PHARMACEUTICALS INC.-AE-2012-010890

PATIENT
  Age: 52 Year
  Sex: Male

DRUGS (15)
  1. REBETOL [Concomitant]
     Route: 048
     Dates: start: 20120524
  2. LOSARTAN POTASSIUM [Concomitant]
     Route: 048
  3. XYZAL [Concomitant]
     Route: 048
     Dates: start: 20120524
  4. PREDNISOLONE [Concomitant]
     Route: 048
     Dates: start: 20120620
  5. TELAVIC (TELAPREVIR) [Suspect]
     Indication: HEPATITIS C
     Route: 048
     Dates: start: 20120524, end: 20120618
  6. PREDNISOLONE [Concomitant]
     Route: 048
     Dates: start: 20120616
  7. MYSER OINTMENT [Concomitant]
     Route: 061
     Dates: start: 20120528, end: 20120618
  8. TELAVIC (TELAPREVIR) [Suspect]
     Route: 048
     Dates: start: 20120619
  9. PEG-INTRON [Concomitant]
     Route: 058
     Dates: start: 20120524
  10. PREDNISOLONE [Concomitant]
     Route: 048
     Dates: start: 20120526, end: 20120601
  11. PREDNISOLONE [Concomitant]
     Route: 048
     Dates: start: 20120602
  12. PREDNISOLONE [Concomitant]
     Route: 048
     Dates: start: 20120609
  13. AMLODIPINE [Concomitant]
     Route: 048
  14. VOLTAREN [Concomitant]
     Route: 048
     Dates: start: 20120524
  15. PREDNISOLONE [Concomitant]
     Route: 048
     Dates: start: 20120704

REACTIONS (1)
  - DRUG ERUPTION [None]
